FAERS Safety Report 8832713 (Version 1)
Quarter: 2012Q4

REPORT INFORMATION
  Report Type: Spontaneous
  Country: US (occurrence: None)
  Receive Date: 20121009
  Receipt Date: 20121009
  Transmission Date: 20130627
  Serious: Yes (Hospitalization)
  Sender: FDA-Public Use
  Company Number: None

PATIENT
  Age: 67 Year
  Sex: Male
  Weight: 76.8 kg

DRUGS (1)
  1. IPRATROPIUM [Suspect]
     Indication: UPPER RESPIRATORY TRACT INFECTION
     Dosage: mcg, Inhale
     Route: 055
     Dates: start: 20120202, end: 20120212

REACTIONS (3)
  - Azotaemia [None]
  - Dysuria [None]
  - Renal failure acute [None]
